FAERS Safety Report 7604313-1 (Version None)
Quarter: 2011Q3

REPORT INFORMATION
  Report Type: 
  Country: None (occurrence: None)
  Receive Date: 20110712
  Receipt Date: 20110629
  Transmission Date: 20111222
  Serious: Yes (Hospitalization)
  Sender: FDA-Public Use
  Company Number: PHHY2010BR14534

PATIENT
  Sex: Male

DRUGS (3)
  1. TRILEPTAL [Suspect]
  2. TEGRETOL-XR [Suspect]
     Dosage: 3 DF, TID
  3. TEGRETOL-XR [Suspect]
     Dosage: 2 DF, TID
     Dates: start: 20100304

REACTIONS (3)
  - DRUG INTOLERANCE [None]
  - CONVULSION [None]
  - DIZZINESS [None]
